FAERS Safety Report 22591150 (Version 4)
Quarter: 2024Q1

REPORT INFORMATION
  Report Type: Spontaneous
  Country: US (occurrence: US)
  Receive Date: 20230612
  Receipt Date: 20240305
  Transmission Date: 20240410
  Serious: Yes (Other)
  Sender: FDA-Public Use
  Company Number: US-PFIZER INC-PV202300102715

PATIENT
  Age: 70 Year
  Sex: Male

DRUGS (1)
  1. INLYTA [Suspect]
     Active Substance: AXITINIB
     Dosage: UNK
     Dates: start: 202212, end: 202306

REACTIONS (14)
  - Lower respiratory tract infection [Recovering/Resolving]
  - Constipation [Recovering/Resolving]
  - Fatigue [Unknown]
  - Temperature intolerance [Unknown]
  - Taste disorder [Unknown]
  - Weight decreased [Recovering/Resolving]
  - Ageusia [Unknown]
  - Cough [Unknown]
  - Mouth swelling [Unknown]
  - Throat irritation [Unknown]
  - Oropharyngeal pain [Recovering/Resolving]
  - Chest pain [Recovering/Resolving]
  - Swollen tongue [Recovering/Resolving]
  - Loss of personal independence in daily activities [Recovering/Resolving]
